FAERS Safety Report 7545890-9 (Version None)
Quarter: 2011Q2

REPORT INFORMATION
  Report Type: 
  Country: None (occurrence: None)
  Receive Date: 20110613
  Receipt Date: 20110613
  Transmission Date: 20111010
  Serious: Yes (Other)
  Sender: FDA-Public Use
  Company Number: None

PATIENT
  Age: 81 Year
  Sex: Male
  Weight: 87.5 kg

DRUGS (2)
  1. HEPARIN SODIUM [Suspect]
  2. HEPARIN SODIUM [Suspect]
     Indication: VASCULAR OPERATION
     Dosage: IV BOLUS
     Route: 040
     Dates: start: 20110602, end: 20110602

REACTIONS (1)
  - DRUG EFFECT DECREASED [None]
